FAERS Safety Report 11236708 (Version 2)
Quarter: 2015Q4

REPORT INFORMATION
  Report Type: Spontaneous
  Country: BR (occurrence: BR)
  Receive Date: 20150703
  Receipt Date: 20151019
  Transmission Date: 20160304
  Serious: Yes (Other)
  Sender: FDA-Public Use
  Company Number: BR-AMGEN-BRASP2015064693

PATIENT
  Age: 37 Year
  Sex: Female
  Weight: 72 kg

DRUGS (5)
  1. PREDNISONE. [Concomitant]
     Active Substance: PREDNISONE
     Dosage: 5 MG - 1 DOSAGE FORM IN THE MORNING AND HALF DOSAGE FORM IN THE EVENING
  2. MELOXICAM. [Concomitant]
     Active Substance: MELOXICAM
     Dosage: 15 MG - HALF DOSAGE FORM PER NIGHT, 40 DAYS
  3. ENBREL [Suspect]
     Active Substance: ETANERCEPT
     Indication: RHEUMATOID ARTHRITIS
     Dosage: 50 MG, ONCE WEEKLY
     Route: 058
     Dates: start: 201410, end: 201412
  4. OMEPRAZOLE. [Concomitant]
     Active Substance: OMEPRAZOLE
     Dosage: 20 MG - 1 DOSAGE FORM EARLY AND AT NIGHT
  5. TECNOMET                           /00113802/ [Concomitant]
     Dosage: 2.5 MG - 5 DOSAGE FORM PER WEEK, 40 DAYS

REACTIONS (6)
  - Arthralgia [Unknown]
  - Musculoskeletal stiffness [Unknown]
  - Local swelling [Unknown]
  - Injection site pain [Recovered/Resolved]
  - Tuberculosis [Unknown]
  - Blood cholesterol increased [Unknown]

NARRATIVE: CASE EVENT DATE: 2014
